FAERS Safety Report 22217398 (Version 1)
Quarter: 2023Q2

REPORT INFORMATION
  Report Type: Report from Study
  Country: US (occurrence: US)
  Receive Date: 20230417
  Receipt Date: 20230417
  Transmission Date: 20230722
  Serious: No
  Sender: FDA-Public Use
  Company Number: US-002147023-NVSC2023US086827

PATIENT
  Sex: Female

DRUGS (1)
  1. TASIGNA [Suspect]
     Active Substance: NILOTINIB
     Indication: Product used for unknown indication
     Dosage: UNK
     Route: 048
     Dates: start: 2011

REACTIONS (10)
  - Retching [Unknown]
  - Rhinorrhoea [Unknown]
  - Sinus disorder [Unknown]
  - Nausea [Unknown]
  - Myalgia [Unknown]
  - Arthralgia [Unknown]
  - Diarrhoea [Unknown]
  - Dry skin [Unknown]
  - Fatigue [Unknown]
  - Migraine [Unknown]
